FAERS Safety Report 15147594 (Version 5)
Quarter: 2019Q4

REPORT INFORMATION
  Report Type: Spontaneous
  Country: US (occurrence: US)
  Receive Date: 20180716
  Receipt Date: 20191126
  Transmission Date: 20200122
  Serious: No
  Sender: FDA-Public Use
  Company Number: US-PFIZER INC-2018284337

PATIENT
  Age: 63 Year
  Sex: Female
  Weight: 79.38 kg

DRUGS (2)
  1. PHENYTOIN. [Suspect]
     Active Substance: PHENYTOIN
     Indication: GENERALISED TONIC-CLONIC SEIZURE
     Dosage: 420 MG, DAILY (300 MG AT BED TIME, 120MG AT BED TIME)
     Route: 048
     Dates: start: 1970
  2. TEGRETOL [Suspect]
     Active Substance: CARBAMAZEPINE
     Indication: GENERALISED TONIC-CLONIC SEIZURE
     Dosage: 420 MG, DAILY (300 MG AT BED TIME, 120MG AT BED TIME)
     Route: 048

REACTIONS (1)
  - Drug ineffective [Unknown]
